FAERS Safety Report 14012789 (Version 1)
Quarter: 2017Q3

REPORT INFORMATION
  Report Type: Spontaneous
  Country: FR (occurrence: FR)
  Receive Date: 20170926
  Receipt Date: 20170926
  Transmission Date: 20171128
  Serious: Yes (Other)
  Sender: FDA-Public Use
  Company Number: FR-TEVA-810131ROM

PATIENT
  Age: 53 Year
  Sex: Female

DRUGS (10)
  1. ACICLOVIR MYLAN [Suspect]
     Active Substance: ACYCLOVIR
     Indication: PRODUCT USED FOR UNKNOWN INDICATION
     Dosage: 1200 MILLIGRAM DAILY;
     Route: 042
     Dates: start: 20170828
  2. CYMEVAN [Suspect]
     Active Substance: GANCICLOVIR
     Indication: CYTOMEGALOVIRUS INFECTION
     Dosage: 800 MILLIGRAM DAILY;
     Dates: start: 20170829
  3. LOVENOX [Suspect]
     Active Substance: ENOXAPARIN SODIUM
     Indication: PROPHYLAXIS
     Route: 058
     Dates: start: 20170831
  4. PIPERACILLIN TAZOBACTAM PA [Concomitant]
     Active Substance: PIPERACILLIN SODIUM\TAZOBACTAM SODIUM
     Route: 065
     Dates: start: 20170823
  5. SOLUVIT [Concomitant]
     Active Substance: VITAMINS
     Route: 065
  6. PANTOPRAZOL ARROW 40 MG POWDER FOR SOLUTION FOR INJECTION [Suspect]
     Active Substance: PANTOPRAZOLE SODIUM
     Indication: ABDOMINAL PAIN UPPER
     Dosage: 80 MILLIGRAM DAILY;
     Route: 042
     Dates: start: 20170828
  7. PHOCYTAN [Concomitant]
     Active Substance: .ALPHA.-GLUCOSE-1-PHOSPHATE
     Route: 065
  8. OLIMEL [Concomitant]
     Active Substance: AMINO ACIDS\DEXTROSE\SOYBEAN OIL
     Route: 065
  9. SCOPODERM [Suspect]
     Active Substance: SCOPOLAMINE
     Indication: DYSPHAGIA
     Dosage: 1 MG / 72 HOURS, TRANSDERMAL SYSTEM
     Route: 062
     Dates: start: 20170828, end: 20170831
  10. VITALIPIDE [Concomitant]
     Route: 065

REACTIONS (3)
  - Aggression [Recovered/Resolved]
  - Agitation [Recovered/Resolved]
  - Seizure [Recovered/Resolved]

NARRATIVE: CASE EVENT DATE: 20170901
